FAERS Safety Report 4684448-6 (Version None)
Quarter: 2005Q2

REPORT INFORMATION
  Report Type: 
  Country: None (occurrence: None)
  Receive Date: 20050531
  Receipt Date: 20050418
  Transmission Date: 20051028
  Serious: Yes (Hospitalization, Other)
  Sender: FDA-Public Use
  Company Number: US_0503113780

PATIENT
  Age: 57 Year
  Sex: Male
  Weight: 85 kg

DRUGS (11)
  1. ZYPREXA [Suspect]
     Dosage: 10 MG/1 DAY
     Route: 048
     Dates: start: 20000830, end: 20040803
  2. SYMBYAX [Suspect]
     Dates: start: 20001227
  3. NEURONTIN [Concomitant]
  4. REMERON (MIRTAZAPINE ORIFARM) [Concomitant]
  5. TRIHEXYPHENIDYL HCL [Concomitant]
  6. HYDROCODONE W/APAP [Concomitant]
  7. ROXICET [Concomitant]
  8. FUROSEMIDE [Concomitant]
  9. LANOXIN (DIGOXIN - SANDOZ) [Concomitant]
  10. DIPHENHYDRAMINE HCL [Concomitant]
  11. METOPROLOL [Concomitant]

REACTIONS (6)
  - CORONARY ARTERY DISEASE [None]
  - DIABETES MELLITUS NON-INSULIN-DEPENDENT [None]
  - DIABETIC HYPEROSMOLAR COMA [None]
  - HYPERGLYCAEMIA [None]
  - MYOCARDIAL INFARCTION [None]
  - NERVOUSNESS [None]
